FAERS Safety Report 25538393 (Version 1)
Quarter: 2025Q3

REPORT INFORMATION
  Report Type: Spontaneous
  Country: CN (occurrence: CN)
  Receive Date: 20250710
  Receipt Date: 20250710
  Transmission Date: 20251021
  Serious: Yes (Other)
  Sender: NOVARTIS
  Company Number: CN-002147023-NVSC2025CN107745

PATIENT
  Age: 36 Year
  Sex: Male
  Weight: 96 kg

DRUGS (2)
  1. CARBAMAZEPINE [Suspect]
     Active Substance: CARBAMAZEPINE
     Indication: Bronchitis
     Dosage: 0.2 G, BID
     Route: 048
     Dates: start: 20250619, end: 20250621
  2. CARBAMAZEPINE [Suspect]
     Active Substance: CARBAMAZEPINE
     Indication: Headache

REACTIONS (4)
  - Fixed eruption [Recovering/Resolving]
  - Erythema [Unknown]
  - Pain [Unknown]
  - Pruritus [Unknown]

NARRATIVE: CASE EVENT DATE: 20250621
